FAERS Safety Report 10220247 (Version 3)
Quarter: 2014Q2

REPORT INFORMATION
  Report Type: Spontaneous
  Country: ES (occurrence: ES)
  Receive Date: 20140606
  Receipt Date: 20140610
  Transmission Date: 20141212
  Serious: Yes (Hospitalization)
  Sender: FDA-Public Use
  Company Number: ES-ROCHE-1412650

PATIENT
  Sex: Female

DRUGS (3)
  1. XOLAIR [Suspect]
     Indication: ASTHMA
     Route: 058
     Dates: start: 201403
  2. XOLAIR [Suspect]
     Route: 058
     Dates: start: 201404, end: 201404
  3. XOLAIR [Suspect]
     Route: 058
     Dates: start: 20140502, end: 20140502

REACTIONS (5)
  - Hypereosinophilic syndrome [Recovered/Resolved]
  - Mastitis [Recovered/Resolved]
  - Lymphoma [Unknown]
  - Eosinophilic pneumonia chronic [Recovered/Resolved]
  - Off label use [Unknown]
